FAERS Safety Report 11300164 (Version 1)
Quarter: 2015Q3

REPORT INFORMATION
  Report Type: Spontaneous
  Country: US (occurrence: US)
  Receive Date: 20150722
  Receipt Date: 20150722
  Transmission Date: 20151125
  Serious: No
  Sender: FDA-Public Use
  Company Number: US-ELI_LILLY_AND_COMPANY-US201304003444

PATIENT
  Age: 70 Year
  Sex: Female

DRUGS (1)
  1. EFFIENT [Suspect]
     Active Substance: PRASUGREL HYDROCHLORIDE
     Indication: STENT PLACEMENT
     Dosage: 10 MG, QD
     Dates: start: 20121223

REACTIONS (9)
  - Haemorrhage [Unknown]
  - Depressed mood [Unknown]
  - Contusion [Unknown]
  - Back pain [Not Recovered/Not Resolved]
  - Heart rate irregular [Unknown]
  - Inflammation [Unknown]
  - Urinary bladder haemorrhage [Unknown]
  - Medication error [Unknown]
  - Gait disturbance [Unknown]

NARRATIVE: CASE EVENT DATE: 201303
